FAERS Safety Report 13319987 (Version 1)
Quarter: 2017Q1

REPORT INFORMATION
  Report Type: Report from Study
  Country: US (occurrence: US)
  Receive Date: 20170310
  Receipt Date: 20170310
  Transmission Date: 20170428
  Serious: No
  Sender: FDA-Public Use
  Company Number: US-009507513-1703USA003776

PATIENT

DRUGS (3)
  1. ZERBAXA [Suspect]
     Active Substance: CEFTOLOZANE SULFATE\TAZOBACTAM SODIUM
     Indication: SEPSIS
  2. ZERBAXA [Suspect]
     Active Substance: CEFTOLOZANE SULFATE\TAZOBACTAM SODIUM
     Indication: PNEUMONIA PSEUDOMONAL
     Dosage: UNK
     Route: 042
  3. ZERBAXA [Suspect]
     Active Substance: CEFTOLOZANE SULFATE\TAZOBACTAM SODIUM
     Indication: URINARY TRACT INFECTION

REACTIONS (1)
  - Product use issue [Unknown]
